FAERS Safety Report 7618783-6 (Version None)
Quarter: 2011Q3

REPORT INFORMATION
  Report Type: 
  Country: None (occurrence: None)
  Receive Date: 20110718
  Receipt Date: 20110713
  Transmission Date: 20111222
  Serious: Yes (Other)
  Sender: FDA-Public Use
  Company Number: US-PFIZER INC-2011158919

PATIENT
  Sex: Female
  Weight: 50.794 kg

DRUGS (1)
  1. LYRICA [Suspect]
     Indication: NERVE INJURY
     Dosage: 100 MG, 1X/DAY
     Route: 048
     Dates: start: 20110711, end: 20110712

REACTIONS (8)
  - HYPERSENSITIVITY [None]
  - HYPERHIDROSIS [None]
  - CHEST DISCOMFORT [None]
  - RASH [None]
  - PANIC ATTACK [None]
  - DYSPNOEA [None]
  - PRURITUS [None]
  - DYSPHAGIA [None]
